FAERS Safety Report 14767011 (Version 2)
Quarter: 2019Q1

REPORT INFORMATION
  Report Type: Spontaneous
  Country: US (occurrence: US)
  Receive Date: 20180417
  Receipt Date: 20190131
  Transmission Date: 20190417
  Serious: Yes (Hospitalization, Other)
  Sender: FDA-Public Use
  Company Number: US-AMGEN-USASP2018048337

PATIENT
  Age: 61 Year
  Sex: Female
  Weight: 54.42 kg

DRUGS (12)
  1. PLAQUENIL [Concomitant]
     Active Substance: HYDROXYCHLOROQUINE SULFATE
     Indication: RHEUMATOID ARTHRITIS
     Dosage: 2 TABLETS, QD
  2. SYNTHROID [Concomitant]
     Active Substance: LEVOTHYROXINE SODIUM
     Dosage: 112 MG, QD
  3. ENBREL [Suspect]
     Active Substance: ETANERCEPT
     Dosage: 50 MG, QWK
     Route: 065
     Dates: start: 20190123
  4. PREDNISONE. [Concomitant]
     Active Substance: PREDNISONE
     Indication: RHEUMATOID ARTHRITIS
     Dosage: UNK UNK, AS NECESSARY
  5. XANAX [Concomitant]
     Active Substance: ALPRAZOLAM
     Indication: DEPRESSION
     Dosage: 3 MG, QD
  6. WELLBUTRIN [Concomitant]
     Active Substance: BUPROPION HYDROCHLORIDE
     Dosage: UNK
  7. DILAUDID [Concomitant]
     Active Substance: HYDROMORPHONE HYDROCHLORIDE
     Dosage: 4 MG, 2.5 TABLETS A DAY
  8. PROLIA [Suspect]
     Active Substance: DENOSUMAB
     Indication: OSTEOPOROSIS POSTMENOPAUSAL
     Dosage: UNK
     Route: 065
     Dates: start: 2017, end: 2017
  9. ENBREL [Suspect]
     Active Substance: ETANERCEPT
     Indication: RHEUMATOID ARTHRITIS
     Dosage: 50 MG, QWK (THURSDAY)
     Route: 065
     Dates: start: 2017
  10. XANAX [Concomitant]
     Active Substance: ALPRAZOLAM
     Indication: ANXIETY
  11. CLODINE [Concomitant]
     Active Substance: TICLOPIDINE HYDROCHLORIDE
     Dosage: UNK
  12. DILAUDID [Concomitant]
     Active Substance: HYDROMORPHONE HYDROCHLORIDE
     Dosage: 8 MG, 6 TIMES A DAY

REACTIONS (14)
  - Loss of consciousness [Recovering/Resolving]
  - Back pain [Unknown]
  - Memory impairment [Unknown]
  - Abdominal pain upper [Unknown]
  - Feeling abnormal [Unknown]
  - Injection site bruising [Unknown]
  - Hypotension [Unknown]
  - Accidental exposure to product [Unknown]
  - Rheumatoid arthritis [Not Recovered/Not Resolved]
  - Wrong technique in product usage process [Unknown]
  - Fall [Unknown]
  - Osteoporosis [Unknown]
  - Gait disturbance [Unknown]
  - Injection site haemorrhage [Unknown]

NARRATIVE: CASE EVENT DATE: 2018
